FAERS Safety Report 10205310 (Version 1)
Quarter: 2014Q2

REPORT INFORMATION
  Report Type: Spontaneous
  Country: US (occurrence: US)
  Receive Date: 20140529
  Receipt Date: 20140529
  Transmission Date: 20141212
  Serious: No
  Sender: FDA-Public Use
  Company Number: US-PFIZER INC-2014147705

PATIENT
  Age: 51 Year
  Sex: Female
  Weight: 115.65 kg

DRUGS (4)
  1. LYRICA [Suspect]
     Indication: NEUROPATHY PERIPHERAL
     Dosage: 150 MG, 3X/DAY
  2. LYRICA [Suspect]
     Indication: FIBROMYALGIA
  3. LOZOL [Concomitant]
     Indication: HYPERTENSION
     Dosage: 1.25 MG, DAILY
  4. METFORMIN [Concomitant]
     Indication: GLUCOSE TOLERANCE IMPAIRED
     Dosage: 500 MG, 2X/DAY

REACTIONS (2)
  - Fall [Unknown]
  - Mydriasis [Unknown]
